FAERS Safety Report 13263223 (Version 1)
Quarter: 2017Q1

REPORT INFORMATION
  Report Type: Spontaneous
  Country: GB (occurrence: GB)
  Receive Date: 20170223
  Receipt Date: 20170223
  Transmission Date: 20170428
  Serious: Yes (Hospitalization, Other)
  Sender: FDA-Public Use
  Company Number: GB-ACCORD-048416

PATIENT
  Age: 98 Year
  Sex: Female

DRUGS (14)
  1. SIMVASTATIN. [Concomitant]
     Active Substance: SIMVASTATIN
  2. LEVETIRACETAM. [Suspect]
     Active Substance: LEVETIRACETAM
     Indication: PRODUCT USED FOR UNKNOWN INDICATION
     Route: 048
  3. IRON [Concomitant]
     Active Substance: IRON
  4. GLYCERYL TRINITRATE [Concomitant]
     Active Substance: NITROGLYCERIN
     Route: 060
  5. AMOXICILLIN. [Concomitant]
     Active Substance: AMOXICILLIN
  6. BISOPROLOL [Concomitant]
     Active Substance: BISOPROLOL
  7. PARACETAMOL [Concomitant]
     Active Substance: ACETAMINOPHEN
  8. SALBUTAMOL [Concomitant]
     Active Substance: ALBUTEROL
  9. IBUPROFEN. [Concomitant]
     Active Substance: IBUPROFEN
  10. RANITIDINE. [Concomitant]
     Active Substance: RANITIDINE
  11. ACETYLSALICYLIC ACID [Concomitant]
     Active Substance: ASPIRIN
  12. CYANOCOBALAMIN. [Concomitant]
     Active Substance: CYANOCOBALAMIN
  13. LANSOPRAZOLE. [Concomitant]
     Active Substance: LANSOPRAZOLE
  14. COLECALCIFEROL [Concomitant]
     Active Substance: CHOLECALCIFEROL

REACTIONS (4)
  - Pneumonia aspiration [Unknown]
  - Epistaxis [Recovered/Resolved]
  - Acute kidney injury [Unknown]
  - Pancytopenia [Recovering/Resolving]
